FAERS Safety Report 22087265 (Version 1)
Quarter: 2023Q1

REPORT INFORMATION
  Report Type: Spontaneous
  Country: US (occurrence: US)
  Receive Date: 20230313
  Receipt Date: 20230313
  Transmission Date: 20230417
  Serious: No
  Sender: FDA-Public Use
  Company Number: US-drreddys-SPO/USA/23/0160105

PATIENT
  Age: 38 Year
  Sex: Female

DRUGS (1)
  1. ZENATANE [Suspect]
     Active Substance: ISOTRETINOIN
     Indication: Product used for unknown indication
     Dosage: RMA DATE: 01 AUGUST 2022, 07:44:29 PM,  01 NOVEMBER 2022, 05:07:23 PM  09 OCTOBER 2022, 10:38:15 AM,

REACTIONS (1)
  - Treatment noncompliance [Unknown]
